FAERS Safety Report 6738669-9 (Version None)
Quarter: 2010Q2

REPORT INFORMATION
  Report Type: 
  Country: None (occurrence: None)
  Receive Date: 20100524
  Receipt Date: 20100517
  Transmission Date: 20101027
  Serious: Yes (Hospitalization)
  Sender: FDA-Public Use
  Company Number: GB-ROCHE-639383

PATIENT
  Age: 45 Year
  Sex: Male

DRUGS (2)
  1. PEGINTERFERON ALFA-2A [Suspect]
     Indication: HEPATITIS C
     Route: 065
  2. RIBAVIRIN [Suspect]
     Indication: HEPATITIS C
     Route: 065

REACTIONS (5)
  - DECREASED APPETITE [None]
  - MANIA [None]
  - SLEEP DISORDER [None]
  - WEIGHT DECREASED [None]
  - WITHDRAWAL SYNDROME [None]
